FAERS Safety Report 4955130-2 (Version None)
Quarter: 2006Q1

REPORT INFORMATION
  Report Type: 
  Country: None (occurrence: None)
  Receive Date: 20060322
  Receipt Date: 20060310
  Transmission Date: 20060701
  Serious: Yes (Other)
  Sender: FDA-Public Use
  Company Number: 2006034094

PATIENT
  Sex: Male

DRUGS (1)
  1. CELEBREX [Suspect]
     Indication: ILL-DEFINED DISORDER
     Dosage: 200 MG

REACTIONS (4)
  - DRUG INEFFECTIVE [None]
  - FOOT OPERATION [None]
  - ILL-DEFINED DISORDER [None]
  - PAIN [None]
